FAERS Safety Report 5055917-4 (Version None)
Quarter: 2006Q3

REPORT INFORMATION
  Report Type: 
  Country: None (occurrence: None)
  Receive Date: 20060717
  Receipt Date: 20060706
  Transmission Date: 20061208
  Serious: Yes (Hospitalization)
  Sender: FDA-Public Use
  Company Number: 227158

PATIENT
  Age: 63 Year
  Sex: Male

DRUGS (5)
  1. MABTHERA (RITUXIMAB) CONC FOR SOLUTION FOR INFUSION [Suspect]
     Indication: DRUG USE FOR UNKNOWN INDICATION
     Dosage: 800 MG,
     Dates: start: 20050421, end: 20050907
  2. CYCLOPHOSPHAMIDE [Suspect]
     Indication: DRUG USE FOR UNKNOWN INDICATION
     Dates: start: 20050424, end: 20050810
  3. PREDNISONE TAB [Suspect]
     Indication: DRUG USE FOR UNKNOWN INDICATION
     Dates: start: 20050421, end: 20050810
  4. VINCRISTINE [Suspect]
     Indication: DRUG USE FOR UNKNOWN INDICATION
     Dates: start: 20050421, end: 20050810
  5. ADRIAMYCIN PFS [Suspect]
     Indication: DRUG USE FOR UNKNOWN INDICATION
     Dates: start: 20050421, end: 20050810

REACTIONS (1)
  - AGRANULOCYTOSIS [None]
